FAERS Safety Report 21390897 (Version 1)
Quarter: 2022Q3

REPORT INFORMATION
  Report Type: Spontaneous
  Country: US (occurrence: None)
  Receive Date: 20220927
  Receipt Date: 20220927
  Transmission Date: 20221027
  Serious: Yes (Other)
  Sender: FDA-Public Use
  Company Number: None

PATIENT
  Age: 33 Year
  Sex: Female
  Weight: 94.5 kg

DRUGS (1)
  1. NUVARING [Suspect]
     Active Substance: ETHINYL ESTRADIOL\ETONOGESTREL
     Dates: start: 20220224

REACTIONS (6)
  - Drug ineffective [None]
  - Heavy menstrual bleeding [None]
  - Alopecia [None]
  - Emotional disorder [None]
  - Depression [None]
  - Weight fluctuation [None]

NARRATIVE: CASE EVENT DATE: 20220224
